FAERS Safety Report 5130485-7 (Version None)
Quarter: 2006Q4

REPORT INFORMATION
  Report Type: 
  Country: None (occurrence: None)
  Receive Date: 20061019
  Receipt Date: 20060616
  Transmission Date: 20070319
  Serious: Yes (Other)
  Sender: FDA-Public Use
  Company Number: US-GLAXOSMITHKLINE-A0609362A

PATIENT
  Age: 45 Year
  Sex: Male

DRUGS (5)
  1. LAMICTAL [Suspect]
     Indication: EPILEPSY
  2. ATENOLOL [Suspect]
     Indication: AORTIC DILATATION
     Dates: start: 20060401
  3. DILTIAZEM HCL [Suspect]
     Indication: AORTIC DILATATION
  4. BETA BLOCKER [Concomitant]
     Indication: HYPERTENSION
  5. CALCIUM CHANNEL BLOCKER [Concomitant]
     Indication: HYPERTENSION

REACTIONS (13)
  - ADVERSE EVENT [None]
  - AMNESIA [None]
  - ANXIETY [None]
  - AORTIC DILATATION [None]
  - BLINDNESS [None]
  - DIZZINESS [None]
  - DRUG INTERACTION [None]
  - DRUG WITHDRAWAL SYNDROME [None]
  - NAUSEA [None]
  - RASH [None]
  - SKIN CHAPPED [None]
  - SKIN EXFOLIATION [None]
  - SKIN HAEMORRHAGE [None]
